FAERS Safety Report 22296057 (Version 2)
Quarter: 2023Q2

REPORT INFORMATION
  Report Type: Spontaneous
  Country: US (occurrence: US)
  Receive Date: 20230508
  Receipt Date: 20230605
  Transmission Date: 20230721
  Serious: No
  Sender: FDA-Public Use
  Company Number: US-Ipsen Biopharmaceuticals, Inc.-2023-09785

PATIENT
  Age: 54 Year
  Sex: Female

DRUGS (4)
  1. DYSPORT [Suspect]
     Active Substance: ABOBOTULINUMTOXINA
     Indication: Skin wrinkling
     Dosage: 75 UNITS,DATE OF INJECTION
     Route: 065
     Dates: start: 20230419, end: 20230419
  2. DYSPORT [Suspect]
     Active Substance: ABOBOTULINUMTOXINA
     Indication: Skin wrinkling
  3. DYSPORT [Suspect]
     Active Substance: ABOBOTULINUMTOXINA
     Indication: Off label use
  4. DYSPORT [Suspect]
     Active Substance: ABOBOTULINUMTOXINA
     Indication: Skin cosmetic procedure

REACTIONS (3)
  - Visual brightness [Recovered/Resolved]
  - Off label use [Unknown]
  - Diplopia [Not Recovered/Not Resolved]

NARRATIVE: CASE EVENT DATE: 20230422
